FAERS Safety Report 13122711 (Version 1)
Quarter: 2017Q1

REPORT INFORMATION
  Report Type: Spontaneous
  Country: FR (occurrence: FR)
  Receive Date: 20170117
  Receipt Date: 20170117
  Transmission Date: 20170428
  Serious: Yes (Death, Hospitalization, Other)
  Sender: FDA-Public Use
  Company Number: FR-ASTRAZENECA-2017SE04135

PATIENT
  Age: 29369 Day
  Sex: Female

DRUGS (13)
  1. MOGADON [Concomitant]
     Active Substance: NITRAZEPAM
     Dosage: 5MG A DAY IF NEEDED
  2. FUROSEMIDE. [Concomitant]
     Active Substance: FUROSEMIDE
     Dosage: 125MG
     Route: 042
  3. TEMERIT [Concomitant]
     Active Substance: NEBIVOLOL
  4. BRILIQUE [Suspect]
     Active Substance: TICAGRELOR
     Dosage: DOSE OF 180MG
     Route: 048
  5. LIPANTHYL [Concomitant]
     Active Substance: FENOFIBRATE
  6. KARDEGIC [Concomitant]
     Active Substance: ASPIRIN LYSINE
  7. LOVENOX [Concomitant]
     Active Substance: ENOXAPARIN SODIUM
     Dosage: 0.4
     Route: 058
  8. DAFALGAN [Concomitant]
     Active Substance: ACETAMINOPHEN
     Dosage: 1G THREE TIMES A DAY IF NEEDED
  9. LEVOTHYROX 125 [Concomitant]
     Active Substance: LEVOTHYROXINE
     Dosage: EVERY MORNING
  10. CORVASAL [Concomitant]
     Active Substance: LINSIDOMINE
  11. MOLVAL [Concomitant]
  12. BRILIQUE [Suspect]
     Active Substance: TICAGRELOR
     Route: 048
     Dates: start: 20161205, end: 20161207
  13. MOVICOL [Concomitant]
     Active Substance: POLYETHYLENE GLYCOL 3350\POTASSIUM CHLORIDE\SODIUM BICARBONATE\SODIUM CHLORIDE
     Dosage: IF NEEDED

REACTIONS (9)
  - Bradycardia [Recovered/Resolved]
  - Death [Fatal]
  - Cardiac arrest [Recovered/Resolved]
  - Haemodynamic instability [Unknown]
  - Nosocomial infection [Unknown]
  - Acute kidney injury [Unknown]
  - Left ventricular failure [Unknown]
  - Atrioventricular block complete [Unknown]
  - Atrial fibrillation [Unknown]

NARRATIVE: CASE EVENT DATE: 20161207
